FAERS Safety Report 7521520-7 (Version None)
Quarter: 2011Q2

REPORT INFORMATION
  Report Type: 
  Country: None (occurrence: None)
  Receive Date: 20110603
  Receipt Date: 20110530
  Transmission Date: 20111010
  Serious: Yes (Hospitalization, Other)
  Sender: FDA-Public Use
  Company Number: US-TEVA-284076USA

PATIENT
  Age: 2 Year
  Sex: Male

DRUGS (1)
  1. CEFTRIAXONE SODIUM [Suspect]

REACTIONS (1)
  - HAEMOLYSIS [None]
